FAERS Safety Report 18302582 (Version 2)
Quarter: 2020Q4

REPORT INFORMATION
  Report Type: Report from Study
  Country: CO (occurrence: CO)
  Receive Date: 20200923
  Receipt Date: 20201009
  Transmission Date: 20210113
  Serious: Yes (Hospitalization)
  Sender: FDA-Public Use
  Company Number: NVSC2020CO243281

PATIENT
  Age: 47 Year
  Sex: Male
  Weight: 70 kg

DRUGS (4)
  1. FEXOFENADINE [Concomitant]
     Active Substance: FEXOFENADINE HYDROCHLORIDE
     Indication: CHRONIC SPONTANEOUS URTICARIA
     Dosage: 180 MG, Q12H
     Route: 048
  2. HYDROCHLOROTHIAZIDE. [Concomitant]
     Active Substance: HYDROCHLOROTHIAZIDE
     Indication: HYPERTENSION
     Dosage: 25 MG, QD
     Route: 048
  3. XOLAIR [Suspect]
     Active Substance: OMALIZUMAB
     Indication: CHRONIC SPONTANEOUS URTICARIA
     Dosage: 300 MG, QMO
     Route: 058
     Dates: start: 20191113
  4. AMLODIPINE [Suspect]
     Active Substance: AMLODIPINE BESYLATE
     Indication: HYPERTENSION
     Dosage: 5 MG, Q12H
     Route: 065

REACTIONS (13)
  - Product prescribing error [Unknown]
  - Discomfort [Recovered/Resolved]
  - Back pain [Recovering/Resolving]
  - Pyrexia [Unknown]
  - Arthralgia [Recovering/Resolving]
  - Inappropriate schedule of product administration [Unknown]
  - Headache [Recovered/Resolved]
  - COVID-19 [Recovered/Resolved]
  - Malaise [Unknown]
  - Asthenia [Recovered/Resolved]
  - Dyspnoea [Recovered/Resolved]
  - Dyspnoea [Unknown]
  - Chills [Unknown]

NARRATIVE: CASE EVENT DATE: 20200829
